FAERS Safety Report 8811904 (Version 1)
Quarter: 2012Q4

REPORT INFORMATION
  Report Type: Spontaneous
  Country: US (occurrence: None)
  Receive Date: 20120926
  Receipt Date: 20120926
  Transmission Date: 20130627
  Serious: Yes (Life-Threatening, Hospitalization, Disabling)
  Sender: FDA-Public Use
  Company Number: None

PATIENT
  Age: 28 Year
  Sex: Female
  Weight: 58.97 kg

DRUGS (1)
  1. MICROGESTIN [Suspect]
     Dosage: 1 over 20
     Route: 048
     Dates: start: 20120326, end: 20120804

REACTIONS (1)
  - Cerebrovascular accident [None]
